FAERS Safety Report 6728119-0 (Version None)
Quarter: 2010Q2

REPORT INFORMATION
  Report Type: 
  Country: None (occurrence: None)
  Receive Date: 20100517
  Receipt Date: 20100507
  Transmission Date: 20101027
  Serious: Yes (Hospitalization)
  Sender: FDA-Public Use
  Company Number: A0785123A

PATIENT
  Age: 44 Year
  Sex: Male
  Weight: 138.6 kg

DRUGS (2)
  1. AVANDIA [Suspect]
     Dosage: 8MG PER DAY
     Route: 048
     Dates: start: 20010101, end: 20010601
  2. AVANDAMET [Suspect]
     Dosage: 8MG PER DAY
     Route: 048
     Dates: start: 20010701, end: 20011026

REACTIONS (2)
  - AORTIC VALVE DISEASE [None]
  - MYOCARDIAL INFARCTION [None]
